FAERS Safety Report 15987771 (Version 1)
Quarter: 2019Q1

REPORT INFORMATION
  Report Type: Spontaneous
  Country: US (occurrence: US)
  Receive Date: 20190220
  Receipt Date: 20190220
  Transmission Date: 20190418
  Serious: No
  Sender: FDA-Public Use
  Company Number: US-PFIZER INC-2017301160

PATIENT
  Age: 70 Year
  Sex: Female
  Weight: 79.38 kg

DRUGS (27)
  1. LORATADINE. [Concomitant]
     Active Substance: LORATADINE
     Dosage: 1 DF, 1X/DAY [1 TABLET BY MOUTH IN THE MORNING]
     Route: 048
  2. NAPROXEN SODIUM. [Concomitant]
     Active Substance: NAPROXEN SODIUM
     Indication: ARTHRALGIA
     Dosage: 1300 MG, DAILY (2 IN A.M, 2 IN P.M)
  3. LEFLUNOMIDE. [Concomitant]
     Active Substance: LEFLUNOMIDE
     Indication: RHEUMATOID ARTHRITIS
     Dosage: 20 MG, 1X/DAY [1 TABLET BY MOUTH IN THE MORNING]
     Route: 048
  4. ISOSORB [Concomitant]
     Dosage: 30 MG, DAILY (ONE DAILY)
  5. IRON [Concomitant]
     Active Substance: IRON
     Indication: ANAEMIA
     Dosage: [1 TABLET BY MOUTH TWICE DAILY]
     Route: 048
  6. LYRICA [Suspect]
     Active Substance: PREGABALIN
     Indication: NEUROPATHY PERIPHERAL
     Dosage: 225 MG, DAILY [1 CAPSULE BY MOUTH IN THE MORNING, 2 CAPSULES BY MOUTH IN THE EVENING]
     Route: 048
     Dates: start: 201701
  7. JANUVIA [Concomitant]
     Active Substance: SITAGLIPTIN PHOSPHATE
     Indication: TYPE 2 DIABETES MELLITUS
     Dosage: 100 MG, 1X/DAY (1 DAILY IN A.M/1 TABLET BY MOUTH IN THE MORNING)
     Route: 048
  8. LORATADINE. [Concomitant]
     Active Substance: LORATADINE
     Indication: SEASONAL ALLERGY
     Dosage: 10 MG, AS NEEDED (DAILY)
  9. CALCIUM + VIT D [Concomitant]
     Active Substance: CALCIUM\VITAMIN D
     Dosage: 1 DF, 1X/DAY (1 DAILY IN A.M)
     Route: 048
  10. AMITIZA [Concomitant]
     Active Substance: LUBIPROSTONE
     Indication: IRRITABLE BOWEL SYNDROME
     Dosage: 24 UG, 2X/DAY (1 TABLET BY MOUTH IN THE MORNING, 1 TABLET BY MOUTH IN THE EVENING)
     Route: 048
  11. CRESTOR [Concomitant]
     Active Substance: ROSUVASTATIN CALCIUM
     Indication: HYPERLIPIDAEMIA
     Dosage: 20 MG, 1X/DAY (1 IN PM)
  12. FUROSEMIDE. [Concomitant]
     Active Substance: FUROSEMIDE
     Dosage: 40 MG, AS NEEDED (1 IN A.M., PM )
  13. METOPROLOL. [Concomitant]
     Active Substance: METOPROLOL
     Indication: CARDIAC DISORDER
     Dosage: 100 MG, DAILY (1 IN A.M, 1 IN P.M)
  14. SPIRONOLACTONE. [Concomitant]
     Active Substance: SPIRONOLACTONE
     Indication: CARDIAC DISORDER
     Dosage: 25 MG, 1X/DAY [1 TABLET BY MOUTH IN THE MORNING]
     Route: 048
     Dates: start: 2009
  15. PLAQUENIL [Concomitant]
     Active Substance: HYDROXYCHLOROQUINE SULFATE
     Indication: RHEUMATOID ARTHRITIS
     Dosage: 200 MG, 2X/DAY (1 IN A.M, 1 IN P.M)
  16. ASA [Concomitant]
     Active Substance: ASPIRIN
     Indication: CHEST PAIN
     Dosage: 325 MG, 1X/DAY (1 IN A.M)
     Route: 048
     Dates: start: 2009
  17. LEVOTHYROXIN [Concomitant]
     Active Substance: LEVOTHYROXINE
     Indication: HYPOTHYROIDISM
     Dosage: 112 UG, 1X/DAY (1 TABLET BY MOUTH IN THE MORNING)
     Route: 048
  18. FOLIC ACID. [Concomitant]
     Active Substance: FOLIC ACID
     Dosage: UNK, 2X/DAY (1 IN A.M, 1 IN P.M)
  19. CRESTOR [Concomitant]
     Active Substance: ROSUVASTATIN CALCIUM
     Dosage: 10 MG, 1X/DAY [1 TABLET BY MOUTH IN THE EVENING]
     Route: 048
  20. DILTIAZEM. [Concomitant]
     Active Substance: DILTIAZEM
     Dosage: 120 MG, 1X/DAY (1 DAILY IN A.N)
  21. PLAVIX [Concomitant]
     Active Substance: CLOPIDOGREL BISULFATE
     Indication: ARTERIOSCLEROSIS
     Dosage: 75 MG, 1X/DAY (DAILY IN A.M)
  22. NAPROXEN SODIUM. [Concomitant]
     Active Substance: NAPROXEN SODIUM
     Dosage: 2200 MG, DAILY [550MG, 2 TABLETS BY MOUTH IN THE MORNING, 2 TABLETS BY MOUTH IN THE EVENING]
     Route: 048
  23. IRON [Concomitant]
     Active Substance: IRON
     Indication: RHEUMATOID ARTHRITIS
  24. LYRICA [Suspect]
     Active Substance: PREGABALIN
     Indication: DIABETIC NEUROPATHY
     Dosage: 225 MG, DAILY (1 IN A.M, 2 IN P.M)
     Dates: start: 2016
  25. METOPROLOL. [Concomitant]
     Active Substance: METOPROLOL
     Dosage: 50 MG, 2X/DAY [1 TABLET BY MOUTH TWICE DAILY]
     Route: 048
     Dates: start: 2009
  26. VITAMIN B12 [Concomitant]
     Active Substance: CYANOCOBALAMIN
     Dosage: 2500 UG, 1X/DAY (DAILY IN A.M)
  27. METFORMIN [Concomitant]
     Active Substance: METFORMIN HYDROCHLORIDE
     Indication: TYPE 2 DIABETES MELLITUS
     Dosage: 500 MG, 2X/DAY [1 TABLET BY MOUTH IN THE MORNING, 1 TABLET BY MOUTH IN THE EVENING, (TWICE DAILY)]
     Route: 048

REACTIONS (3)
  - Insomnia [Unknown]
  - Loss of personal independence in daily activities [Unknown]
  - Feeling abnormal [Unknown]
